FAERS Safety Report 5543432-0 (Version None)
Quarter: 2007Q4

REPORT INFORMATION
  Report Type: 
  Country: None (occurrence: None)
  Receive Date: 20071210
  Receipt Date: 20061107
  Transmission Date: 20080405
  Serious: No
  Sender: FDA-Public Use
  Company Number: US-AMGEN-KDL198099

PATIENT
  Sex: Female

DRUGS (4)
  1. ENBREL [Suspect]
     Indication: RHEUMATOID ARTHRITIS
     Route: 058
     Dates: start: 19991111
  2. ENBREL [Suspect]
     Indication: DRUG USE FOR UNKNOWN INDICATION
  3. ENBREL [Suspect]
     Indication: OSTEOARTHRITIS
  4. METHOTREXATE [Concomitant]
     Dates: start: 19980101

REACTIONS (4)
  - ANOREXIA [None]
  - CONDITION AGGRAVATED [None]
  - FATIGUE [None]
  - RHEUMATOID ARTHRITIS [None]
